FAERS Safety Report 6988469-X (Version None)
Quarter: 2010Q3

REPORT INFORMATION
  Report Type: 
  Country: None (occurrence: None)
  Receive Date: 20100916
  Receipt Date: 20100803
  Transmission Date: 20110219
  Serious: Yes (Death, Hospitalization, Other)
  Sender: FDA-Public Use
  Company Number: US-BAXTER-2010BH012791

PATIENT
  Age: 78 Year
  Sex: Female

DRUGS (62)
  1. HEPARIN SODIUM INJECTION [Suspect]
     Indication: CORONARY ARTERY BYPASS
     Route: 065
     Dates: start: 20080104, end: 20080120
  2. HEPARIN SODIUM INJECTION [Suspect]
     Indication: MITRAL VALVE REPAIR
     Route: 065
     Dates: start: 20080104, end: 20080120
  3. HEPARIN SODIUM INJECTION [Suspect]
     Indication: THROMBOSIS PROPHYLAXIS
     Route: 065
     Dates: start: 20080104, end: 20080120
  4. HEPARIN SODIUM INJECTION [Suspect]
     Route: 065
     Dates: start: 20080123, end: 20080123
  5. HEPARIN SODIUM INJECTION [Suspect]
     Route: 065
     Dates: start: 20080123, end: 20080123
  6. HEPARIN SODIUM INJECTION [Suspect]
     Route: 065
     Dates: start: 20080123, end: 20080123
  7. HEPARIN SODIUM INJECTION [Suspect]
     Route: 058
     Dates: start: 20080104, end: 20080104
  8. HEPARIN SODIUM INJECTION [Suspect]
     Route: 058
     Dates: start: 20080104, end: 20080104
  9. HEPARIN SODIUM INJECTION [Suspect]
     Route: 058
     Dates: start: 20080104, end: 20080104
  10. HEPARIN SODIUM INJECTION [Suspect]
     Route: 058
     Dates: start: 20080105, end: 20080108
  11. HEPARIN SODIUM INJECTION [Suspect]
     Route: 058
     Dates: start: 20080105, end: 20080108
  12. HEPARIN SODIUM INJECTION [Suspect]
     Route: 058
     Dates: start: 20080105, end: 20080108
  13. HEPARIN SODIUM INJECTION [Suspect]
     Route: 058
     Dates: start: 20080109, end: 20080110
  14. HEPARIN SODIUM INJECTION [Suspect]
     Route: 058
     Dates: start: 20080109, end: 20080110
  15. HEPARIN SODIUM INJECTION [Suspect]
     Route: 058
     Dates: start: 20080109, end: 20080110
  16. HEPARIN SODIUM INJECTION [Suspect]
     Route: 058
     Dates: start: 20080111, end: 20080113
  17. HEPARIN SODIUM INJECTION [Suspect]
     Route: 058
     Dates: start: 20080111, end: 20080113
  18. HEPARIN SODIUM INJECTION [Suspect]
     Route: 058
     Dates: start: 20080111, end: 20080113
  19. HEPARIN SODIUM INJECTION [Suspect]
     Route: 058
     Dates: start: 20080114, end: 20080117
  20. HEPARIN SODIUM INJECTION [Suspect]
     Route: 058
     Dates: start: 20080114, end: 20080117
  21. HEPARIN SODIUM INJECTION [Suspect]
     Route: 058
     Dates: start: 20080114, end: 20080117
  22. HEPARIN SODIUM INJECTION [Suspect]
     Route: 058
     Dates: start: 20080118, end: 20080118
  23. HEPARIN SODIUM INJECTION [Suspect]
     Route: 058
     Dates: start: 20080118, end: 20080118
  24. HEPARIN SODIUM INJECTION [Suspect]
     Route: 058
     Dates: start: 20080118, end: 20080118
  25. HEPARIN SODIUM INJECTION [Suspect]
     Route: 058
     Dates: start: 20080119, end: 20080119
  26. HEPARIN SODIUM INJECTION [Suspect]
     Route: 058
     Dates: start: 20080119, end: 20080119
  27. HEPARIN SODIUM INJECTION [Suspect]
     Route: 058
     Dates: start: 20080119, end: 20080119
  28. HEPARIN SODIUM INJECTION [Suspect]
     Route: 058
     Dates: start: 20080120, end: 20080120
  29. HEPARIN SODIUM INJECTION [Suspect]
     Route: 058
     Dates: start: 20080120, end: 20080120
  30. HEPARIN SODIUM INJECTION [Suspect]
     Route: 058
     Dates: start: 20080120, end: 20080120
  31. HEPARIN SODIUM INJECTION [Suspect]
     Route: 058
     Dates: start: 20080123, end: 20080123
  32. HEPARIN SODIUM INJECTION [Suspect]
     Route: 058
     Dates: start: 20080123, end: 20080123
  33. HEPARIN SODIUM INJECTION [Suspect]
     Route: 058
     Dates: start: 20080123, end: 20080123
  34. ASPIRIN [Concomitant]
     Indication: PRODUCT USED FOR UNKNOWN INDICATION
     Route: 065
  35. NEXIUM [Concomitant]
     Indication: PRODUCT USED FOR UNKNOWN INDICATION
     Route: 065
  36. LANTUS [Concomitant]
     Indication: PRODUCT USED FOR UNKNOWN INDICATION
     Route: 065
  37. FUROSEMIDE [Concomitant]
     Indication: PRODUCT USED FOR UNKNOWN INDICATION
     Route: 065
  38. PLAVIX [Concomitant]
     Indication: PRODUCT USED FOR UNKNOWN INDICATION
     Route: 065
  39. LIPITOR [Concomitant]
     Indication: PRODUCT USED FOR UNKNOWN INDICATION
     Route: 065
  40. PREDNISONE [Concomitant]
     Indication: PRODUCT USED FOR UNKNOWN INDICATION
     Route: 065
  41. ZITHROMAX [Concomitant]
     Indication: PRODUCT USED FOR UNKNOWN INDICATION
     Route: 065
  42. ROCEPHIN [Concomitant]
     Indication: PRODUCT USED FOR UNKNOWN INDICATION
     Route: 065
  43. DEXTROSE [Concomitant]
     Indication: PRODUCT USED FOR UNKNOWN INDICATION
     Route: 065
  44. FUROSEMIDE [Concomitant]
     Route: 065
  45. ZOSYN [Concomitant]
     Indication: PRODUCT USED FOR UNKNOWN INDICATION
     Route: 065
  46. VANCOMYCIN [Concomitant]
     Indication: PRODUCT USED FOR UNKNOWN INDICATION
     Route: 065
  47. 5% DEXTROSE INJECTION [Concomitant]
     Indication: PRODUCT USED FOR UNKNOWN INDICATION
     Route: 065
  48. PULMICORT [Concomitant]
     Indication: PRODUCT USED FOR UNKNOWN INDICATION
     Route: 065
  49. DOCUSATE [Concomitant]
     Indication: PRODUCT USED FOR UNKNOWN INDICATION
     Route: 065
  50. AVELOX [Concomitant]
     Indication: PRODUCT USED FOR UNKNOWN INDICATION
     Route: 065
  51. ISOSORBIDE [Concomitant]
     Indication: PRODUCT USED FOR UNKNOWN INDICATION
     Route: 065
  52. VERAPAMIL [Concomitant]
     Indication: PRODUCT USED FOR UNKNOWN INDICATION
     Route: 065
  53. ACETYLCYSTEINE [Concomitant]
     Indication: PRODUCT USED FOR UNKNOWN INDICATION
     Route: 065
  54. KAOPECTATE [Concomitant]
     Indication: PRODUCT USED FOR UNKNOWN INDICATION
     Route: 065
  55. INSULIN [Concomitant]
     Indication: PRODUCT USED FOR UNKNOWN INDICATION
     Route: 065
  56. POTASSIUM CHLORIDE [Concomitant]
     Indication: PRODUCT USED FOR UNKNOWN INDICATION
     Route: 048
  57. WARFARIN SODIUM [Concomitant]
     Indication: PRODUCT USED FOR UNKNOWN INDICATION
     Route: 048
  58. MAGNESIUM SULFATE [Concomitant]
     Indication: PRODUCT USED FOR UNKNOWN INDICATION
     Route: 042
  59. FLAGYL [Concomitant]
     Indication: PRODUCT USED FOR UNKNOWN INDICATION
     Route: 048
  60. DIURIL [Concomitant]
     Indication: PRODUCT USED FOR UNKNOWN INDICATION
     Route: 042
  61. DIFLUCAN [Concomitant]
     Indication: PRODUCT USED FOR UNKNOWN INDICATION
     Route: 042
  62. APRESOLINE [Concomitant]
     Indication: PRODUCT USED FOR UNKNOWN INDICATION
     Route: 048

REACTIONS (22)
  - ARTERIOSCLEROSIS [None]
  - ATRIAL FIBRILLATION [None]
  - BRONCHOPNEUMONIA [None]
  - CARDIO-RESPIRATORY ARREST [None]
  - CHEST PAIN [None]
  - CLOSTRIDIUM DIFFICILE COLITIS [None]
  - ENTEROCOCCAL INFECTION [None]
  - FLUID OVERLOAD [None]
  - GENERALISED OEDEMA [None]
  - HEPARIN-INDUCED THROMBOCYTOPENIA [None]
  - HYPOTENSION [None]
  - INTRACARDIAC THROMBUS [None]
  - OESOPHAGITIS [None]
  - OLIGURIA [None]
  - ORAL HERPES [None]
  - PANCREATITIS [None]
  - PULMONARY OEDEMA [None]
  - RESPIRATORY FAILURE [None]
  - SPUTUM CULTURE POSITIVE [None]
  - STAPHYLOCOCCAL INFECTION [None]
  - URINARY TRACT INFECTION [None]
  - WHITE BLOOD CELL COUNT INCREASED [None]
